FAERS Safety Report 19884840 (Version 1)
Quarter: 2021Q3

REPORT INFORMATION
  Report Type: Spontaneous
  Country: US (occurrence: US)
  Receive Date: 20210924
  Receipt Date: 20210924
  Transmission Date: 20211014
  Serious: Yes (Other)
  Sender: FDA-Public Use
  Company Number: None

PATIENT
  Age: 40 Year
  Sex: Male
  Weight: 85.28 kg

DRUGS (1)
  1. LEVETIRACETAM XR [Suspect]
     Active Substance: LEVETIRACETAM
     Route: 048

REACTIONS (4)
  - Drug hypersensitivity [None]
  - Seizure [None]
  - Product substitution issue [None]
  - Insurance issue [None]
